FAERS Safety Report 8150998 (Version 3)
Quarter: 2012Q4

REPORT INFORMATION
  Report Type: 
  Country: US (occurrence: US)
  Receive Date: 20110922
  Receipt Date: 20121213
  Transmission Date: 20130627
  Serious: Yes (Other)
  Sender: FDA-Public Use
  Company Number: US-ASTRAZENECA-2011SE33695

PATIENT
  Age: 30 Year
  Sex: Male

DRUGS (2)
  1. SEROQUEL XR [Suspect]
     Route: 048
  2. NEXIUM [Suspect]
     Route: 048

REACTIONS (7)
  - Facial bones fracture [Unknown]
  - Psychotic disorder [Unknown]
  - Convulsion [Unknown]
  - Aphagia [Unknown]
  - Activities of daily living impaired [Unknown]
  - Insomnia [Unknown]
  - Drug dose omission [Unknown]
